FAERS Safety Report 9781726 (Version 1)
Quarter: 2013Q4

REPORT INFORMATION
  Report Type: Spontaneous
  Country: KR (occurrence: KR)
  Receive Date: 20131224
  Receipt Date: 20131224
  Transmission Date: 20140711
  Serious: Yes (Other)
  Sender: FDA-Public Use
  Company Number: KR-009507513-1312KOR009899

PATIENT
  Sex: 0

DRUGS (1)
  1. REMERON [Suspect]
     Indication: MAJOR DEPRESSION
     Route: 048

REACTIONS (1)
  - Convulsion [Unknown]
